FAERS Safety Report 5557078-1 (Version None)
Quarter: 2007Q4

REPORT INFORMATION
  Report Type: 
  Country: None (occurrence: None)
  Receive Date: 20071214
  Receipt Date: 20071205
  Transmission Date: 20080405
  Serious: Yes (Other)
  Sender: FDA-Public Use
  Company Number: US-JNJFOC-20071104165

PATIENT
  Sex: Female
  Weight: 68.49 kg

DRUGS (16)
  1. REMICADE [Suspect]
     Indication: RHEUMATOID ARTHRITIS
     Route: 042
  2. DYAZIDE [Concomitant]
  3. LASIX [Concomitant]
  4. CALCIUM [Concomitant]
  5. TYLENOL (CAPLET) [Concomitant]
     Dosage: AS NEEDED.
  6. ASPIRIN [Concomitant]
  7. NEXIUM [Concomitant]
  8. BENTYL [Concomitant]
  9. PREMARIN [Concomitant]
  10. ESKIMO-3 FISH OIL [Concomitant]
  11. METHOTREXATE [Concomitant]
  12. NUTRIENT [Concomitant]
  13. POTASSIUM CHLORIDE [Concomitant]
  14. BENADRYL [Concomitant]
  15. SUPER B COMPLEX [Concomitant]
  16. STOOL SOFTENER [Concomitant]

REACTIONS (1)
  - GLOMERULONEPHRITIS MINIMAL LESION [None]
